FAERS Safety Report 15499195 (Version 1)
Quarter: 2018Q4

REPORT INFORMATION
  Report Type: Spontaneous
  Country: US (occurrence: US)
  Receive Date: 20181006
  Receipt Date: 20181006
  Transmission Date: 20190205
  Serious: Yes (Life-Threatening, Disabling, Other)
  Sender: FDA-Public Use
  Company Number: None

PATIENT
  Age: 58 Year
  Sex: Female
  Weight: 90 kg

DRUGS (2)
  1. AIMOVIG [Suspect]
     Active Substance: ERENUMAB-AOOE
     Indication: MIGRAINE
     Dosage: ?          OTHER FREQUENCY:THIRTY DAYS;?
     Route: 058
     Dates: start: 20180901, end: 20181001
  2. XYANAX [Concomitant]

REACTIONS (7)
  - Mental disorder [None]
  - Formication [None]
  - Crying [None]
  - Thinking abnormal [None]
  - Adverse reaction [None]
  - Agitation [None]
  - Suicidal ideation [None]

NARRATIVE: CASE EVENT DATE: 20181004
